FAERS Safety Report 4822359-3 (Version None)
Quarter: 2005Q4

REPORT INFORMATION
  Report Type: 
  Country: None (occurrence: None)
  Receive Date: 20051108
  Receipt Date: 20051019
  Transmission Date: 20060501
  Serious: Yes (Hospitalization, Other)
  Sender: FDA-Public Use
  Company Number: JP-BRISTOL-MYERS SQUIBB COMPANY-13170048

PATIENT
  Age: 61 Year
  Sex: Female

DRUGS (6)
  1. ENDOXAN [Suspect]
     Route: 041
     Dates: start: 20050809, end: 20050809
  2. DECADRON SRC [Suspect]
     Route: 041
     Dates: start: 20050809, end: 20050809
  3. NASEA [Suspect]
     Route: 041
     Dates: start: 20050809, end: 20050809
  4. FARMORUBICIN [Suspect]
     Route: 041
     Dates: start: 20050809, end: 20050809
  5. GLUCOSE [Concomitant]
     Dates: start: 20050809, end: 20050809
  6. ISOTONIC SODIUM CHLORIDE [Concomitant]
     Dates: start: 20050809, end: 20050809

REACTIONS (2)
  - CELLULITIS [None]
  - SKIN NECROSIS [None]
